FAERS Safety Report 7330052-0 (Version None)
Quarter: 2011Q1

REPORT INFORMATION
  Report Type: 
  Country: None (occurrence: None)
  Receive Date: 20110303
  Receipt Date: 20110216
  Transmission Date: 20110831
  Serious: Yes (Hospitalization, Other)
  Sender: FDA-Public Use
  Company Number: US-BAYER-201021416NA

PATIENT
  Sex: Female
  Weight: 63.492 kg

DRUGS (4)
  1. YASMIN [Suspect]
     Indication: CONTRACEPTION
     Route: 048
     Dates: start: 20040101
  2. SYNTHROID [Concomitant]
     Indication: HYPOTHYROIDISM
     Dosage: UNK
  3. METFORMIN [Concomitant]
     Indication: POLYCYSTIC OVARIES
  4. ASCORBIC ACID [Concomitant]
     Dosage: UNK

REACTIONS (12)
  - CHOLECYSTITIS CHRONIC [None]
  - DEEP VEIN THROMBOSIS [None]
  - PARAESTHESIA [None]
  - PAIN IN EXTREMITY [None]
  - BILIARY DYSKINESIA [None]
  - OEDEMA PERIPHERAL [None]
  - CHEST PAIN [None]
  - NAUSEA [None]
  - PULMONARY EMBOLISM [None]
  - HYPOAESTHESIA [None]
  - COLLATERAL CIRCULATION [None]
  - ABDOMINAL PAIN UPPER [None]
